FAERS Safety Report 13954396 (Version 1)
Quarter: 2017Q3

REPORT INFORMATION
  Report Type: Spontaneous
  Country: US (occurrence: US)
  Receive Date: 20170911
  Receipt Date: 20170911
  Transmission Date: 20171128
  Serious: Yes (Other)
  Sender: FDA-Public Use
  Company Number: US-BTG INTERNATIONAL LTD-2017BTG01357

PATIENT
  Age: 60 Year
  Sex: Male

DRUGS (3)
  1. CROFAB [Suspect]
     Active Substance: CROTALIDAE POLYVALENT IMMUNE FAB (OVINE)
     Indication: SNAKE BITE
     Dosage: 14 VIALS, SINGLE
     Route: 065
  2. CROFAB [Suspect]
     Active Substance: CROTALIDAE POLYVALENT IMMUNE FAB (OVINE)
     Dosage: 16 VIALS, UNK
  3. DEXAMETHASONE [Concomitant]
     Indication: THROMBOCYTOPENIA
     Dosage: 10 MG, UNK
     Route: 042

REACTIONS (4)
  - Coagulopathy [Unknown]
  - Drug ineffective [Unknown]
  - Blood fibrinogen decreased [Unknown]
  - Thrombocytopenia [Not Recovered/Not Resolved]
